FAERS Safety Report 23467163 (Version 3)
Quarter: 2024Q4

REPORT INFORMATION
  Report Type: Spontaneous
  Country: JP (occurrence: JP)
  Receive Date: 20240201
  Receipt Date: 20241114
  Transmission Date: 20250115
  Serious: Yes (Hospitalization, Other)
  Sender: ALEXION PHARMACEUTICALS
  Company Number: 2024A021922

PATIENT
  Age: 64 Year
  Weight: 43 kg

DRUGS (18)
  1. LYNPARZA [Suspect]
     Active Substance: OLAPARIB
  2. LYNPARZA [Suspect]
     Active Substance: OLAPARIB
  3. LYNPARZA [Suspect]
     Active Substance: OLAPARIB
  4. LYNPARZA [Suspect]
     Active Substance: OLAPARIB
  5. LYNPARZA [Suspect]
     Active Substance: OLAPARIB
  6. LYNPARZA [Suspect]
     Active Substance: OLAPARIB
  7. LYNPARZA [Suspect]
     Active Substance: OLAPARIB
  8. LYNPARZA [Suspect]
     Active Substance: OLAPARIB
  9. LYNPARZA [Suspect]
     Active Substance: OLAPARIB
  10. LYNPARZA [Suspect]
     Active Substance: OLAPARIB
  11. LYNPARZA [Suspect]
     Active Substance: OLAPARIB
  12. LYNPARZA [Suspect]
     Active Substance: OLAPARIB
  13. CARBOCYSTEINE [Concomitant]
     Active Substance: CARBOCYSTEINE
     Indication: Bronchitis chronic
     Dosage: 500 MILLIGRAM, TID
  14. CARBOCYSTEINE [Concomitant]
     Active Substance: CARBOCYSTEINE
     Dosage: 500 MILLIGRAM, TID
  15. AMBROXOL HYDROCHLORIDE [Concomitant]
     Active Substance: AMBROXOL HYDROCHLORIDE
     Indication: Bronchitis chronic
     Dosage: 45 MILLIGRAM, QD
  16. AMBROXOL HYDROCHLORIDE [Concomitant]
     Active Substance: AMBROXOL HYDROCHLORIDE
     Dosage: 45 MILLIGRAM, QD
  17. MAGNESIUM OXIDE [Concomitant]
     Active Substance: MAGNESIUM OXIDE
     Indication: Constipation
     Dosage: 300 MILLIGRAM, TID
  18. MAGNESIUM OXIDE [Concomitant]
     Active Substance: MAGNESIUM OXIDE
     Dosage: 300 MILLIGRAM, TID

REACTIONS (3)
  - Pulmonary toxicity [Recovering/Resolving]
  - Myelosuppression [Recovering/Resolving]
  - Bronchitis chronic [Recovering/Resolving]
